FAERS Safety Report 10015737 (Version 3)
Quarter: 2014Q3

REPORT INFORMATION
  Report Type: Spontaneous
  Country: US (occurrence: US)
  Receive Date: 20140317
  Receipt Date: 20140916
  Transmission Date: 20150326
  Serious: Yes (Hospitalization, Other)
  Sender: FDA-Public Use
  Company Number: US-BAYER-2014-039218

PATIENT
  Age: 46 Year
  Sex: Female
  Weight: 104.31 kg

DRUGS (4)
  1. LEVOTHYROXINE [Concomitant]
     Active Substance: LEVOTHYROXINE
     Dosage: 25 MCG/24HR, UNK
     Dates: start: 20120411
  2. AYGESTIN [Concomitant]
     Active Substance: NORETHINDRONE ACETATE
     Dosage: UNK
     Dates: start: 20120605
  3. QVAR [Concomitant]
     Active Substance: BECLOMETHASONE DIPROPIONATE
     Dosage: 80 MCG/24HR, UNK
     Dates: start: 20120411
  4. MIRENA [Suspect]
     Active Substance: LEVONORGESTREL
     Indication: MENORRHAGIA
     Dosage: 20 MCG/24HR, CONT
     Route: 015
     Dates: start: 20120420, end: 20120620

REACTIONS (14)
  - Pain [Not Recovered/Not Resolved]
  - Headache [None]
  - Genital haemorrhage [None]
  - Depression [None]
  - Vision blurred [None]
  - Anxiety [None]
  - Dizziness [None]
  - Emotional distress [None]
  - Dysmenorrhoea [None]
  - Infertility female [None]
  - Device defective [None]
  - Uterine scar [Not Recovered/Not Resolved]
  - Uterine perforation [Not Recovered/Not Resolved]
  - Injury [Not Recovered/Not Resolved]
